FAERS Safety Report 25841116 (Version 6)
Quarter: 2025Q3

REPORT INFORMATION
  Report Type: Spontaneous
  Country: US (occurrence: US)
  Receive Date: 20250924
  Receipt Date: 20250930
  Transmission Date: 20251021
  Serious: Yes (Other)
  Sender: IPSEN BIOPHARMACEUTICALS, INC.
  Company Number: US-IPSEN Group, Research and Development-2025-23449

PATIENT
  Sex: Female
  Weight: 86 kg

DRUGS (1)
  1. SOMATULINE DEPOT [Suspect]
     Active Substance: LANREOTIDE ACETATE
     Indication: Acromegaly
     Dosage: 90MG/0.3ML
     Route: 030

REACTIONS (5)
  - Brain neoplasm [Unknown]
  - Tension headache [Unknown]
  - Stress [Unknown]
  - Migraine [Unknown]
  - Incorrect route of product administration [Unknown]
